FAERS Safety Report 5512170-2 (Version None)
Quarter: 2007Q4

REPORT INFORMATION
  Report Type: 
  Country: None (occurrence: None)
  Receive Date: 20071112
  Receipt Date: 20071105
  Transmission Date: 20080405
  Serious: Yes (Death, Hospitalization)
  Sender: FDA-Public Use
  Company Number: PHBS2007ES18445

PATIENT
  Age: 73 Year
  Sex: Female

DRUGS (10)
  1. VALSARTAN AND HYDROCHLOROTHIAZIDE [Suspect]
     Indication: HYPERTENSION
     Dosage: UNK, UNK
     Route: 048
     Dates: start: 20070101
  2. AUGMENTIN '125' [Suspect]
     Indication: RESPIRATORY TRACT INFECTION
     Dosage: UNK, BID
     Route: 048
     Dates: start: 20070320
  3. SINTROM [Concomitant]
     Dosage: 4 MG, UNK
     Dates: start: 20040101
  4. DIGOXIN [Concomitant]
     Dates: start: 20040101
  5. CARDURA [Concomitant]
     Dosage: 4 MG, UNK
     Dates: start: 20040101
  6. VALSARTAN [Concomitant]
     Dosage: 80 MG, UNK
     Dates: start: 20040101, end: 20070101
  7. EMEPROTON [Concomitant]
     Dosage: 20 MG, UNK
     Dates: start: 20040101
  8. ZARATOR [Concomitant]
     Dosage: 20 MG, UNK
     Dates: start: 20040101
  9. SEGURIL [Concomitant]
     Dosage: 40 MG, UNK
     Dates: start: 20040101
  10. AREMIS [Concomitant]
     Dosage: 50 MG, UNK
     Dates: start: 20040101

REACTIONS (6)
  - ASPIRATION TRACHEAL [None]
  - MECHANICAL VENTILATION [None]
  - RENAL FAILURE [None]
  - RESPIRATORY FAILURE [None]
  - SEPTIC SHOCK [None]
  - TOXIC EPIDERMAL NECROLYSIS [None]
